FAERS Safety Report 21702446 (Version 1)
Quarter: 2022Q4

REPORT INFORMATION
  Report Type: Spontaneous
  Country: US (occurrence: US)
  Receive Date: 20221208
  Receipt Date: 20221208
  Transmission Date: 20230113
  Serious: No
  Sender: FDA-Public Use
  Company Number: US-IBSA PHARMA INC.-2021IBS000258

PATIENT
  Age: 63 Year
  Sex: Male
  Weight: 68.027 kg

DRUGS (7)
  1. TIROSINT [Suspect]
     Active Substance: LEVOTHYROXINE SODIUM
     Indication: Hypothyroidism
     Dosage: 137 ?G, QD
     Route: 048
  2. TESTOSTERONE [Concomitant]
     Active Substance: TESTOSTERONE
     Indication: Product used for unknown indication
     Dosage: UNK
  3. ZANAFLEX [Concomitant]
     Active Substance: TIZANIDINE HYDROCHLORIDE
     Indication: Product used for unknown indication
  4. HYDROCORTISONE [Concomitant]
     Active Substance: HYDROCORTISONE
     Indication: Product used for unknown indication
     Dosage: 10 MG, UNK
  5. NAPROXEN [Concomitant]
     Active Substance: NAPROXEN
     Indication: Product used for unknown indication
     Dosage: 500 MG, PRN
  6. GABAPENTIN [Concomitant]
     Active Substance: GABAPENTIN
     Indication: Product used for unknown indication
     Dosage: 600 MG, TID
  7. FLOMAX                             /01280302/ [Concomitant]
     Indication: Product used for unknown indication
     Dosage: 0.4 UNK, BID
     Route: 048

REACTIONS (1)
  - Thyroxine free decreased [Unknown]

NARRATIVE: CASE EVENT DATE: 20211122
